FAERS Safety Report 6613399-2 (Version None)
Quarter: 2010Q1

REPORT INFORMATION
  Report Type: 
  Country: None (occurrence: None)
  Receive Date: 20100304
  Receipt Date: 20100222
  Transmission Date: 20100710
  Serious: Yes (Other)
  Sender: FDA-Public Use
  Company Number: GB-NOVOPROD-301396

PATIENT
  Age: 62 Year
  Sex: Male
  Weight: 77.4 kg

DRUGS (2)
  1. NOVOMIX 30 [Suspect]
     Indication: INSULIN-REQUIRING TYPE 2 DIABETES MELLITUS
     Dosage: 48+12 IU, QD
     Dates: start: 20070101, end: 20091101
  2. HUMALOG MIX                        /01293501/ [Concomitant]
     Indication: INSULIN-REQUIRING TYPE 2 DIABETES MELLITUS

REACTIONS (5)
  - INJECTION SITE ERYTHEMA [None]
  - INJECTION SITE LACERATION [None]
  - INJECTION SITE PRURITUS [None]
  - INJECTION SITE SWELLING [None]
  - RASH [None]
